FAERS Safety Report 9518965 (Version 1)
Quarter: 2013Q3

REPORT INFORMATION
  Report Type: Spontaneous
  Country: US (occurrence: US)
  Receive Date: 20130912
  Receipt Date: 20130912
  Transmission Date: 20140515
  Serious: No
  Sender: FDA-Public Use
  Company Number: US-PFIZER INC-2013258632

PATIENT
  Age: 85 Year
  Sex: Female
  Weight: 72.56 kg

DRUGS (2)
  1. ACCUPRIL [Suspect]
     Indication: HYPERTENSION
     Dosage: 20 MG, 2X/DAY
  2. NORVASC [Concomitant]
     Indication: HYPERTENSION
     Dosage: UNK

REACTIONS (5)
  - Drug ineffective [Unknown]
  - Medication residue present [Unknown]
  - Body height below normal [Unknown]
  - Polydipsia [Unknown]
  - Malaise [Unknown]
